FAERS Safety Report 8276969-4 (Version None)
Quarter: 2012Q2

REPORT INFORMATION
  Report Type: 
  Country: None (occurrence: None)
  Receive Date: 20120412
  Receipt Date: 20120412
  Transmission Date: 20120825
  Serious: Yes (Other)
  Sender: FDA-Public Use
  Company Number: IL-PFIZER INC-2011220509

PATIENT
  Age: 60 Year
  Sex: Male

DRUGS (1)
  1. SUTENT [Suspect]
     Indication: PHAEOCHROMOCYTOMA
     Dosage: 25 MG, 1X/DAY
     Route: 048

REACTIONS (2)
  - NEOPLASM MALIGNANT [None]
  - MYELODYSPLASTIC SYNDROME [None]
